FAERS Safety Report 8992105 (Version 1)
Quarter: 2012Q4

REPORT INFORMATION
  Report Type: Report from Study
  Country: JP (occurrence: JP)
  Receive Date: 20121231
  Receipt Date: 20121231
  Transmission Date: 20130627
  Serious: Yes (Other)
  Sender: FDA-Public Use
  Company Number: JP-VERTEX PHARMACEUTICALS INC.-2012-026747

PATIENT
  Age: 65 Year
  Sex: Male

DRUGS (23)
  1. VX-950 (TELAPREVIR) [Suspect]
     Indication: CHRONIC HEPATITIS C
     Dosage: 1500 mg, qd
     Route: 048
     Dates: start: 20120702, end: 20120708
  2. VX-950 (TELAPREVIR) [Suspect]
     Dosage: 2250 mg, qd
     Route: 048
     Dates: start: 20120709, end: 20120715
  3. VX-950 (TELAPREVIR) [Suspect]
     Dosage: 1500 mg, qd
     Route: 048
     Dates: start: 20120716, end: 20120917
  4. VX-950 (TELAPREVIR) [Suspect]
     Dosage: 2250 mg, qd
     Route: 048
     Dates: start: 20120918, end: 20120923
  5. REBETOL [Suspect]
     Indication: CHRONIC HEPATITIS C
     Dosage: 800 mg, qd
     Route: 048
     Dates: start: 20120702, end: 20120708
  6. REBETOL [Suspect]
     Dosage: 600 mg, qd
     Route: 048
     Dates: start: 20120709, end: 20120711
  7. REBETOL [Suspect]
     Dosage: 800 mg, qd
     Route: 048
     Dates: start: 20120712, end: 20120715
  8. REBETOL [Suspect]
     Dosage: 200 mg, qd
     Route: 048
     Dates: start: 20120716, end: 20120805
  9. REBETOL [Suspect]
     Dosage: 400 mg, qd
     Route: 048
     Dates: start: 20120806, end: 20120812
  10. REBETOL [Suspect]
     Dosage: 200 mg, qd
     Route: 048
     Dates: start: 20120813, end: 20120819
  11. REBETOL [Suspect]
     Dosage: 200 mg, qod
     Route: 048
     Dates: start: 20120820, end: 20120826
  12. REBETOL [Suspect]
     Dosage: 200 mg, qd
     Route: 048
     Dates: start: 20120827, end: 20120909
  13. REBETOL [Suspect]
     Dosage: 400 mg, qd
     Route: 048
     Dates: start: 20120910, end: 20120930
  14. REBETOL [Suspect]
     Dosage: 600 mg, qd
     Route: 048
     Dates: start: 20121001, end: 20121014
  15. REBETOL [Suspect]
     Dosage: 400 mg, qd
     Route: 048
     Dates: start: 20121015, end: 20121028
  16. REBETOL [Suspect]
     Dosage: 600 mg, qd
     Route: 048
     Dates: start: 20121029, end: 20121104
  17. REBETOL [Suspect]
     Dosage: 800 mg, qd
     Route: 048
     Dates: start: 20121105
  18. PEGINTERFERON ALFA-2B [Suspect]
     Indication: CHRONIC HEPATITIS C
     Dosage: 1.6 ?g/kg, qw
     Route: 058
     Dates: start: 20120702
  19. URSO                               /00465701/ [Concomitant]
     Dosage: 300 mg, qd
     Route: 048
     Dates: end: 20120708
  20. HUMALOG [Concomitant]
     Dosage: 22 DF, qd
     Route: 058
  21. ALLOPURINOL [Concomitant]
     Dosage: 100 mg, qd
     Route: 048
  22. NERISONA [Concomitant]
     Dosage: q.s., qd
     Route: 061
     Dates: start: 20121001
  23. HIRUDOID                           /00723701/ [Concomitant]
     Dosage: q.s., qd
     Route: 061
     Dates: start: 20121001

REACTIONS (1)
  - Loss of consciousness [Recovered/Resolved]
